FAERS Safety Report 17818754 (Version 2)
Quarter: 2020Q2

REPORT INFORMATION
  Report Type: Spontaneous
  Country: FR (occurrence: FR)
  Receive Date: 20200522
  Receipt Date: 20200602
  Transmission Date: 20200714
  Serious: No
  Sender: FDA-Public Use
  Company Number: FR-US-PROVELL PHARMACEUTICALS LLC-E2B_90077384

PATIENT
  Sex: Female

DRUGS (2)
  1. LEVOTHYROX 125 [Suspect]
     Active Substance: LEVOTHYROXINE
     Dosage: THERAPY START DATE: 12-MAY-2020
  2. LEVOTHYROX 125 [Suspect]
     Active Substance: LEVOTHYROXINE
     Indication: AUTOIMMUNE THYROIDITIS
     Dates: end: 202005

REACTIONS (10)
  - Tachycardia [Unknown]
  - Blood thyroid stimulating hormone increased [Unknown]
  - Mood swings [Recovering/Resolving]
  - Weight increased [Recovering/Resolving]
  - Fatigue [Recovering/Resolving]
  - Palpitations [Unknown]
  - Vertigo [Recovered/Resolved]
  - Dyspnoea [Recovered/Resolved]
  - Constipation [Recovering/Resolving]
  - Dizziness [Recovered/Resolved]

NARRATIVE: CASE EVENT DATE: 2020
